FAERS Safety Report 18757910 (Version 11)
Quarter: 2021Q2

REPORT INFORMATION
  Report Type: Report from Study
  Country: None (occurrence: ES)
  Receive Date: 20210119
  Receipt Date: 20210403
  Transmission Date: 20210717
  Serious: Yes (Hospitalization)
  Sender: FDA-Public Use
  Company Number: ES-ABBVIE-21K-144-3735723-00

PATIENT
  Age: 77 Year
  Sex: Male

DRUGS (2)
  1. DUODOPA [Suspect]
     Active Substance: CARBIDOPA\LEVODOPA
     Indication: PARKINSON^S DISEASE
     Dosage: 514251
     Route: 050
     Dates: start: 20201008, end: 20210223
  2. DUODOPA [Suspect]
     Active Substance: CARBIDOPA\LEVODOPA
     Dosage: DOSE INCREASED.
     Route: 050
     Dates: start: 20210223

REACTIONS (11)
  - Fear [Unknown]
  - Asthenia [Unknown]
  - Oxygen saturation decreased [Recovered/Resolved]
  - Freezing phenomenon [Recovered/Resolved]
  - COVID-19 pneumonia [Recovered/Resolved]
  - On and off phenomenon [Recovered/Resolved]
  - Restlessness [Recovered/Resolved]
  - Fatigue [Recovered/Resolved]
  - Gait disturbance [Not Recovered/Not Resolved]
  - Asphyxia [Recovered/Resolved]
  - Insomnia [Recovered/Resolved]

NARRATIVE: CASE EVENT DATE: 2021
